FAERS Safety Report 12213016 (Version 1)
Quarter: 2016Q1

REPORT INFORMATION
  Report Type: Spontaneous
  Country: US (occurrence: None)
  Receive Date: 20160325
  Receipt Date: 20160325
  Transmission Date: 20160526
  Serious: Yes (Life-Threatening, Hospitalization, Disabling, Other)
  Sender: FDA-Public Use
  Company Number: None

PATIENT
  Age: 68 Year
  Sex: Female
  Weight: 36.29 kg

DRUGS (2)
  1. AUGMENTIN [Suspect]
     Active Substance: AMOXICILLIN\CLAVULANATE POTASSIUM
     Indication: PRODUCT USED FOR UNKNOWN INDICATION
     Dates: start: 20140617, end: 20140901
  2. METHOTREXATE [Suspect]
     Active Substance: METHOTREXATE
     Indication: SKIN DISORDER

REACTIONS (6)
  - Paraesthesia [None]
  - Wheelchair user [None]
  - Abasia [None]
  - Nerve injury [None]
  - Rash generalised [None]
  - Weight decreased [None]

NARRATIVE: CASE EVENT DATE: 20140617
